FAERS Safety Report 7656353-4 (Version None)
Quarter: 2011Q3

REPORT INFORMATION
  Report Type: 
  Country: None (occurrence: None)
  Receive Date: 20110804
  Receipt Date: 20110714
  Transmission Date: 20111222
  Serious: Yes (Hospitalization)
  Sender: FDA-Public Use
  Company Number: US-GLAXOSMITHKLINE-A0869579A

PATIENT
  Age: 64 Year
  Sex: Male

DRUGS (1)
  1. AVANDIA [Suspect]
     Indication: DIABETES MELLITUS
     Dosage: 4MG PER DAY
     Dates: start: 20010401, end: 20020905

REACTIONS (5)
  - ACUTE RESPIRATORY FAILURE [None]
  - EMOTIONAL DISTRESS [None]
  - CORONARY ARTERY DISEASE [None]
  - VENTRICULAR FIBRILLATION [None]
  - MYOCARDIAL INFARCTION [None]
